FAERS Safety Report 5153279-5 (Version None)
Quarter: 2006Q4

REPORT INFORMATION
  Report Type: 
  Country: None (occurrence: None)
  Receive Date: 20061116
  Receipt Date: 20061116
  Transmission Date: 20070319
  Serious: Yes (Hospitalization)
  Sender: FDA-Public Use
  Company Number: None

PATIENT
  Sex: Male

DRUGS (1)
  1. DEPAKENE [Suspect]
     Indication: MOOD ALTERED
     Dosage: 1500MG  PO  HS
     Route: 048
     Dates: start: 20051130, end: 20060824

REACTIONS (2)
  - PANCYTOPENIA [None]
  - PNEUMONIA [None]
